FAERS Safety Report 16671677 (Version 1)
Quarter: 2019Q3

REPORT INFORMATION
  Report Type: Spontaneous
  Country: CH (occurrence: CH)
  Receive Date: 20190806
  Receipt Date: 20190806
  Transmission Date: 20191004
  Serious: Yes (Hospitalization)
  Sender: FDA-Public Use
  Company Number: CH-ASTRAZENECA-2019SF09235

PATIENT
  Age: 17870 Day
  Sex: Male
  Weight: 110 kg

DRUGS (7)
  1. SEQUASE [Suspect]
     Active Substance: QUETIAPINE FUMARATE
     Route: 048
  2. FLOXYFRAL [Concomitant]
     Active Substance: FLUVOXAMINE
     Route: 048
  3. KETALGIN NOS [Concomitant]
     Active Substance: KETOROLAC TROMETHAMINE OR METHADONE
     Route: 048
  4. PANTOZOL [Concomitant]
     Active Substance: PANTOPRAZOLE SODIUM
     Route: 048
  5. TRUXAL [Suspect]
     Active Substance: CHLORPROTHIXENE
     Route: 048
     Dates: end: 20190712
  6. DALMADORM [Concomitant]
     Active Substance: FLURAZEPAM HYDROCHLORIDE
     Route: 048
  7. SERESTA [Concomitant]
     Active Substance: OXAZEPAM
     Route: 048

REACTIONS (1)
  - Neuroleptic malignant syndrome [Recovered/Resolved]

NARRATIVE: CASE EVENT DATE: 20190628
